FAERS Safety Report 21618443 (Version 1)
Quarter: 2022Q4

REPORT INFORMATION
  Report Type: Spontaneous
  Country: US (occurrence: US)
  Receive Date: 20221119
  Receipt Date: 20221119
  Transmission Date: 20230112
  Serious: No
  Sender: FDA-Public Use
  Company Number: US-SA-SAC20221116001329

PATIENT
  Sex: Female
  Weight: 68 kg

DRUGS (4)
  1. LEFLUNOMIDE [Suspect]
     Active Substance: LEFLUNOMIDE
  2. METHOTREXATE [Suspect]
     Active Substance: METHOTREXATE
     Indication: Rheumatoid arthritis
     Dosage: 5 DF, QW
  3. XELJANZ [Concomitant]
     Active Substance: TOFACITINIB CITRATE
  4. FOLIC ACID [Concomitant]
     Active Substance: FOLIC ACID

REACTIONS (3)
  - Illness [Recovered/Resolved]
  - Musculoskeletal discomfort [Recovered/Resolved]
  - Nausea [Recovered/Resolved]
